FAERS Safety Report 14819468 (Version 1)
Quarter: 2018Q2

REPORT INFORMATION
  Report Type: Spontaneous
  Country: US (occurrence: US)
  Receive Date: 20180427
  Receipt Date: 20180427
  Transmission Date: 20180711
  Serious: No
  Sender: FDA-Public Use
  Company Number: US-BAYER-2018-073346

PATIENT
  Age: 67 Year
  Sex: Male
  Weight: 60 kg

DRUGS (6)
  1. MIRALAX [Suspect]
     Active Substance: POLYETHYLENE GLYCOL 3350
     Dosage: 1 CAPFUL DOSE
     Route: 048
  2. ATORVASTATIN [Concomitant]
     Active Substance: ATORVASTATIN
  3. ENALAPRIL MALEATE AND HYDROCHLOROTHIAZIDE [Concomitant]
     Active Substance: ENALAPRIL MALEATE\HYDROCHLOROTHIAZIDE
  4. ALLOPURINOL. [Concomitant]
     Active Substance: ALLOPURINOL
  5. PERCOCET [Concomitant]
     Active Substance: ACETAMINOPHEN\OXYCODONE HYDROCHLORIDE
  6. OXYCODONE [Concomitant]
     Active Substance: OXYCODONE

REACTIONS (3)
  - Product use issue [Unknown]
  - Product use in unapproved indication [Unknown]
  - Therapeutic response unexpected [Unknown]
